FAERS Safety Report 4615422-3 (Version None)
Quarter: 2005Q1

REPORT INFORMATION
  Report Type: 
  Country: None (occurrence: None)
  Receive Date: 20050317
  Receipt Date: 20050304
  Transmission Date: 20050727
  Serious: Yes (Other)
  Sender: FDA-Public Use
  Company Number: 2005042128

PATIENT
  Age: 74 Year
  Sex: Male
  Weight: 87.9978 kg

DRUGS (13)
  1. NEURONTIN [Suspect]
     Indication: PAIN IN EXTREMITY
     Dosage: 200 MG (100 MG), ORAL
     Route: 048
     Dates: start: 20030101
  2. CELEBREX [Suspect]
     Indication: ARTHRITIS
     Dosage: 200 MG (100 MG, 2 IN 1 D), ORAL
     Route: 048
     Dates: start: 20030101
  3. CELEBREX [Suspect]
     Indication: CHEST WALL PAIN
     Dosage: 200 MG (100 MG, 2 IN 1 D), ORAL
     Route: 048
     Dates: start: 20030101
  4. LOSARTAN POTASSIUM [Concomitant]
  5. LEVOTHYROXINE SODIUM [Concomitant]
  6. AMLODIPINE BESYLATE [Concomitant]
  7. RANITIDINE HYDROCHLORIDE [Concomitant]
  8. ATENOLOL [Concomitant]
  9. FUROSEMIDE [Concomitant]
  10. PRAVASTATIN SODIUM [Concomitant]
  11. ULTRACET [Concomitant]
  12. CLORAZEPATE DIPOTASSIUM [Concomitant]
  13. ASPIRIN [Concomitant]

REACTIONS (10)
  - BLISTER [None]
  - BLOOD DISORDER [None]
  - DRUG INEFFECTIVE [None]
  - METASTASES TO LUNG [None]
  - NEOPLASM MALIGNANT [None]
  - PAIN IN EXTREMITY [None]
  - PHARMACEUTICAL PRODUCT COMPLAINT [None]
  - POST PROCEDURAL COMPLICATION [None]
  - RADIATION SKIN INJURY [None]
  - SARCOMA [None]
